FAERS Safety Report 5227410-7 (Version None)
Quarter: 2007Q1

REPORT INFORMATION
  Report Type: 
  Country: None (occurrence: None)
  Receive Date: 20070202
  Receipt Date: 20070125
  Transmission Date: 20070707
  Serious: Yes (Death, Other)
  Sender: FDA-Public Use
  Company Number: IE-ELI_LILLY_AND_COMPANY-IE200609006580

PATIENT
  Age: 84 Year
  Sex: Female
  Weight: 65 kg

DRUGS (12)
  1. CIPROFLOXACIN HCL [Concomitant]
     Indication: SEPSIS
     Dosage: UNK, UNK
     Dates: start: 20060828
  2. METRONIDAZOLE [Concomitant]
     Indication: SEPSIS
  3. VANCOMYCIN [Concomitant]
     Indication: SEPSIS
     Dosage: UNK, UNK
     Dates: start: 20060829
  4. CEFOTAXIME [Concomitant]
     Indication: SEPSIS
     Dosage: UNK, UNK
     Dates: start: 20060829
  5. AMIODARONE HCL [Concomitant]
     Indication: SUPRAVENTRICULAR TACHYCARDIA
     Dosage: UNK, UNK
     Dates: start: 20060828
  6. VASOPRESSIN [Concomitant]
     Indication: HYPOTENSION
     Dosage: UNK, UNK
     Dates: start: 20060828
  7. PIPERACILLIN SODIUM W/TAZOBACTAM [Concomitant]
     Dates: start: 20060828, end: 20060829
  8. MIDAZOLAM HCL [Concomitant]
     Indication: SEDATION
     Dosage: UNK, UNK
     Dates: start: 20060828
  9. FENTANYL [Concomitant]
     Indication: SEDATION
     Dates: start: 20060828
  10. HYDROCORTISONE [Concomitant]
     Indication: SEPTIC SHOCK
     Dosage: UNK, UNK
     Dates: start: 20060828
  11. NORADRENALINE [Concomitant]
     Indication: HYPOTENSION
     Dosage: UNK, UNK
     Dates: start: 20060828
  12. XIGRIS [Suspect]
     Indication: SEPTIC SHOCK
     Dosage: 0.024 MG/KG, EVERY HOUR
     Route: 042
     Dates: start: 20060828, end: 20060830

REACTIONS (3)
  - DISSEMINATED INTRAVASCULAR COAGULATION [None]
  - HAEMORRHAGE INTRACRANIAL [None]
  - MENINGITIS PNEUMOCOCCAL [None]
